FAERS Safety Report 7728204-0 (Version None)
Quarter: 2011Q3

REPORT INFORMATION
  Report Type: 
  Country: None (occurrence: None)
  Receive Date: 20110905
  Receipt Date: 20110822
  Transmission Date: 20111222
  Serious: Yes (Other)
  Sender: FDA-Public Use
  Company Number: PHHY2010CA55402

PATIENT
  Sex: Female

DRUGS (5)
  1. ZOLEDRONOC ACID [Suspect]
     Indication: OSTEOPOROSIS
     Dosage: 5 MG, UNK
     Route: 042
     Dates: start: 20100920
  2. PROLIA [Concomitant]
  3. TRAZODONE HCL [Concomitant]
     Dosage: HALF A TABLET BEFORE GOING TO BED
  4. SYNTHROID [Concomitant]
     Dosage: 0.05 MG, UNK
  5. CRESTOR [Concomitant]
     Dosage: 5 MG, UNK

REACTIONS (5)
  - HEADACHE [None]
  - PYREXIA [None]
  - NAUSEA [None]
  - TEMPORAL ARTERITIS [None]
  - PAIN [None]
